FAERS Safety Report 7778438-4 (Version None)
Quarter: 2011Q3

REPORT INFORMATION
  Report Type: 
  Country: None (occurrence: None)
  Receive Date: 20110926
  Receipt Date: 20110920
  Transmission Date: 20111222
  Serious: Yes (Hospitalization)
  Sender: FDA-Public Use
  Company Number: US-GLAXOSMITHKLINE-A0945702A

PATIENT
  Age: 55 Year
  Sex: Female
  Weight: 51.7 kg

DRUGS (1)
  1. FLOLAN [Suspect]
     Indication: PULMONARY ARTERIAL HYPERTENSION
     Dosage: 20.5NGKM UNKNOWN
     Route: 065
     Dates: start: 20110428

REACTIONS (1)
  - HYPOVOLAEMIA [None]
